FAERS Safety Report 4604648-0 (Version None)
Quarter: 2005Q2

REPORT INFORMATION
  Report Type: 
  Country: None (occurrence: None)
  Receive Date: 20050223
  Receipt Date: 20041108
  Transmission Date: 20051028
  Serious: No
  Sender: FDA-Public Use
  Company Number: PHEH2004US08062

PATIENT
  Sex: Female

DRUGS (2)
  1. ZELNORM [Suspect]
     Dates: start: 20040113
  2. EFFEXOR [Suspect]
     Indication: BIPOLAR DISORDER

REACTIONS (2)
  - ANXIETY [None]
  - DRUG INTERACTION [None]
